FAERS Safety Report 7878374-9 (Version None)
Quarter: 2011Q4

REPORT INFORMATION
  Report Type: 
  Country: None (occurrence: None)
  Receive Date: 20111028
  Receipt Date: 20111017
  Transmission Date: 20120403
  Serious: Yes (Other)
  Sender: FDA-Public Use
  Company Number: IS-ACCORD-011086

PATIENT
  Age: 58 Year
  Sex: Male

DRUGS (1)
  1. SIMVASTATIN [Suspect]
     Indication: PRODUCT USED FOR UNKNOWN INDICATION
     Dosage: 20.00-MG

REACTIONS (7)
  - JAUNDICE CHOLESTATIC [None]
  - LIVER INJURY [None]
  - ALANINE AMINOTRANSFERASE INCREASED [None]
  - ACUTE HEPATIC FAILURE [None]
  - BLOOD ALKALINE PHOSPHATASE INCREASED [None]
  - ASPARTATE AMINOTRANSFERASE INCREASED [None]
  - LIVER TRANSPLANT [None]
